FAERS Safety Report 4604513-9 (Version None)
Quarter: 2005Q2

REPORT INFORMATION
  Report Type: 
  Country: None (occurrence: None)
  Receive Date: 20050223
  Receipt Date: 20041210
  Transmission Date: 20051028
  Serious: No
  Sender: FDA-Public Use
  Company Number: PHEH2004US13209

PATIENT
  Age: 54 Year
  Sex: Male

DRUGS (1)
  1. ZELNORM [Suspect]
     Indication: IRRITABLE BOWEL SYNDROME
     Dosage: 6 MG, BID, ORAL
     Route: 048
     Dates: start: 20041206

REACTIONS (4)
  - ARTHRALGIA [None]
  - HYPOAESTHESIA [None]
  - LIMB DISCOMFORT [None]
  - SENSATION OF HEAVINESS [None]
